FAERS Safety Report 22061721 (Version 1)
Quarter: 2023Q1

REPORT INFORMATION
  Report Type: Report from Study
  Country: GB (occurrence: GB)
  Receive Date: 20230304
  Receipt Date: 20230304
  Transmission Date: 20230418
  Serious: Yes (Hospitalization, Other)
  Sender: FDA-Public Use
  Company Number: GB-ABBVIE-4181010

PATIENT
  Age: 32 Year
  Sex: Female

DRUGS (1)
  1. HUMIRA [Suspect]
     Active Substance: ADALIMUMAB
     Indication: Crohn^s disease
     Route: 058
     Dates: start: 2018, end: 202210

REACTIONS (15)
  - Surgery [Unknown]
  - Drug ineffective [Unknown]
  - Tonsillitis [Unknown]
  - Crohn^s disease [Unknown]
  - Productive cough [Unknown]
  - Sepsis [Unknown]
  - Pharyngeal disorder [Unknown]
  - Abscess [Unknown]
  - Feeling cold [Unknown]
  - Infection [Unknown]
  - Injection site pruritus [Unknown]
  - Lower respiratory tract infection [Unknown]
  - Lung disorder [Unknown]
  - Accident [Unknown]
  - Sputum discoloured [Unknown]

NARRATIVE: CASE EVENT DATE: 20220101
